FAERS Safety Report 7551309 (Version 2)
Quarter: 2012Q4

REPORT INFORMATION
  Report Type: 
  Country: US (occurrence: US)
  Receive Date: 20100824
  Receipt Date: 20120904
  Transmission Date: 20130627
  Serious: Yes (Life-Threatening, Hospitalization)
  Sender: FDA-Public Use
  Company Number: US-US-EMD SERONO, INC.-7014830

PATIENT
  Age: 39 None
  Sex: Male

DRUGS (2)
  1. REBIF [Suspect]
     Indication: MULTIPLE SCLEROSIS
     Route: 058
     Dates: start: 20080724, end: 20100817
  2. UNSPECIFIED MEDICATIONS [Concomitant]
     Indication: PRODUCT USED FOR UNKNOWN INDICATION

REACTIONS (9)
  - Cerebrovascular accident [Recovered/Resolved]
  - Coma [Recovered/Resolved]
  - Grand mal convulsion [Recovered/Resolved]
  - Renal failure acute [Recovered/Resolved]
  - Benign prostatic hyperplasia [Recovered/Resolved]
  - Kidney infection [Unknown]
  - Multiple sclerosis [Recovered/Resolved]
  - Hypertension [Unknown]
  - Depression [Recovered/Resolved]
